FAERS Safety Report 9735261 (Version 1)
Quarter: 2013Q4

REPORT INFORMATION
  Report Type: Spontaneous
  Country: US (occurrence: None)
  Receive Date: 20131205
  Receipt Date: 20131205
  Transmission Date: 20140711
  Serious: No
  Sender: FDA-Public Use
  Company Number: None

PATIENT
  Age: 6 Year
  Sex: Male
  Weight: 19.96 kg

DRUGS (1)
  1. INTUNIV [Suspect]
     Indication: ATTENTION DEFICIT/HYPERACTIVITY DISORDER
     Dosage: TAKEN BY MOUTH
     Route: 048
     Dates: start: 20131002, end: 20131113

REACTIONS (6)
  - Sleep terror [None]
  - Nightmare [None]
  - Emotional disorder [None]
  - Fear [None]
  - Middle insomnia [None]
  - Screaming [None]
